FAERS Safety Report 4509631-1 (Version None)
Quarter: 2004Q4

REPORT INFORMATION
  Report Type: 
  Country: None (occurrence: None)
  Receive Date: 20041124
  Receipt Date: 20041104
  Transmission Date: 20050328
  Serious: Yes (Death, Hospitalization)
  Sender: FDA-Public Use
  Company Number: PHBS2004JP14808

PATIENT
  Age: 20 Year
  Sex: Male

DRUGS (4)
  1. CYCLOSPORINE [Suspect]
     Indication: RENAL TRANSPLANT
     Route: 065
  2. MIZORIBINE [Suspect]
     Route: 065
  3. METHYLPREDNISOLONE [Suspect]
     Route: 065
  4. HEMOPHAGOCYTIC [Suspect]

REACTIONS (7)
  - ABDOMINAL PAIN [None]
  - GENERAL PHYSICAL CONDITION ABNORMAL [None]
  - HISTIOCYTOSIS HAEMATOPHAGIC [None]
  - PANCREATITIS ACUTE [None]
  - PANCYTOPENIA [None]
  - POST PROCEDURAL COMPLICATION [None]
  - RENAL IMPAIRMENT [None]
